FAERS Safety Report 6303602-0 (Version None)
Quarter: 2009Q3

REPORT INFORMATION
  Report Type: 
  Country: None (occurrence: None)
  Receive Date: 20090807
  Receipt Date: 20090807
  Transmission Date: 20100115
  Serious: No
  Sender: FDA-Public Use
  Company Number: None

PATIENT
  Sex: Female

DRUGS (2)
  1. TOPRIMATE 50MG [Suspect]
     Indication: CONVULSION
     Dosage: ONE TID PO
     Route: 048
     Dates: start: 20090602, end: 20090608
  2. TOPRIMATE 50MG [Suspect]
     Indication: MIGRAINE
     Dosage: ONE TID PO
     Route: 048
     Dates: start: 20090602, end: 20090608

REACTIONS (3)
  - AURA [None]
  - DRUG INEFFECTIVE [None]
  - PRODUCT SUBSTITUTION ISSUE [None]
